FAERS Safety Report 6138770-7 (Version None)
Quarter: 2009Q1

REPORT INFORMATION
  Report Type: 
  Country: None (occurrence: None)
  Receive Date: 20090327
  Receipt Date: 20090311
  Transmission Date: 20090719
  Serious: Yes (Death, Hospitalization)
  Sender: FDA-Public Use
  Company Number: 8044116

PATIENT
  Age: 71 Year
  Sex: Male

DRUGS (7)
  1. PREDNISOLONE [Suspect]
     Indication: IDIOPATHIC THROMBOCYTOPENIC PURPURA
     Dosage: 90 MG /D PO
     Route: 048
  2. PREDNISOLONE [Suspect]
     Indication: IDIOPATHIC THROMBOCYTOPENIC PURPURA
     Dosage: PO
     Route: 048
  3. MOXIFLOXACIN HCL [Concomitant]
  4. GLIMEPIRIDE [Concomitant]
  5. CIPROFLOXACIN [Concomitant]
  6. AMOXICILLIN [Concomitant]
  7. ITRACONAZOLE [Concomitant]

REACTIONS (13)
  - BLOOD PRESSURE SYSTOLIC INCREASED [None]
  - HAEMATURIA [None]
  - HAEMOGLOBIN DECREASED [None]
  - HEART RATE INCREASED [None]
  - HYPERGLYCAEMIA [None]
  - LUNG NEOPLASM MALIGNANT [None]
  - MICROSPORUM INFECTION [None]
  - PNEUMONIA [None]
  - PURULENCE [None]
  - RENAL INFARCT [None]
  - RESPIRATORY FAILURE [None]
  - SYSTEMIC MYCOSIS [None]
  - URINE ANALYSIS ABNORMAL [None]
